FAERS Safety Report 19808440 (Version 1)
Quarter: 2021Q3

REPORT INFORMATION
  Report Type: Spontaneous
  Country: US (occurrence: US)
  Receive Date: 20210903
  Receipt Date: 20210903
  Transmission Date: 20211014
  Serious: Yes (Hospitalization)
  Sender: FDA-Public Use
  Company Number: None

PATIENT
  Age: 59 Year
  Sex: Female

DRUGS (1)
  1. MEKINIST [Suspect]
     Active Substance: TRAMETINIB DIMETHYL SULFOXIDE
     Route: 048
     Dates: start: 202004

REACTIONS (4)
  - Sepsis [None]
  - Bacterial infection [None]
  - Uterine disorder [None]
  - Urinary tract infection [None]

NARRATIVE: CASE EVENT DATE: 20210507
